FAERS Safety Report 15093240 (Version 3)
Quarter: 2018Q3

REPORT INFORMATION
  Report Type: Report from Study
  Country: CR (occurrence: CR)
  Receive Date: 20180629
  Receipt Date: 20180902
  Transmission Date: 20181010
  Serious: Yes (Hospitalization, Other)
  Sender: FDA-Public Use
  Company Number: PHHY2017CR141679

PATIENT
  Age: 61 Year
  Sex: Female
  Weight: 82 kg

DRUGS (3)
  1. SANDOSTATIN LAR DEPOT [Suspect]
     Active Substance: OCTREOTIDE ACETATE
     Indication: PRODUCT USED FOR UNKNOWN INDICATION
     Dosage: UNK UNK, QMO
     Route: 030
  2. AFINITOR [Suspect]
     Active Substance: EVEROLIMUS
     Indication: NEUROENDOCRINE TUMOUR
     Dosage: 10 MG, EVERY 24 HRS
     Route: 048
  3. AFINITOR [Suspect]
     Active Substance: EVEROLIMUS
     Indication: METASTASES TO LIVER

REACTIONS (45)
  - Globulins increased [Unknown]
  - Albumin globulin ratio increased [Unknown]
  - Erythema [Unknown]
  - Fatigue [Recovered/Resolved]
  - Pyrexia [Recovered/Resolved]
  - Inflammation [Recovering/Resolving]
  - Glucose tolerance impaired [Unknown]
  - Pruritus [Not Recovered/Not Resolved]
  - Oral mucosal blistering [Unknown]
  - Total cholesterol/HDL ratio increased [Unknown]
  - Asthma [Recovered/Resolved]
  - Gastrointestinal wall thickening [Unknown]
  - Very low density lipoprotein increased [Unknown]
  - Asthma [Unknown]
  - Dysphonia [Unknown]
  - Gastroenteritis [Recovered/Resolved]
  - Pigmentation disorder [Unknown]
  - Haemoglobin decreased [Unknown]
  - Dysphagia [Unknown]
  - Nasopharyngitis [Unknown]
  - Blood cholesterol increased [Unknown]
  - Influenza [Recovered/Resolved]
  - Increased appetite [Unknown]
  - Glycosylated haemoglobin increased [Unknown]
  - Swelling face [Unknown]
  - Gastrointestinal stromal tumour [Unknown]
  - Lung disorder [Unknown]
  - Feeling abnormal [Unknown]
  - Contusion [Recovering/Resolving]
  - Haematocrit decreased [Unknown]
  - Mean cell volume decreased [Unknown]
  - Decreased appetite [Not Recovered/Not Resolved]
  - Loose tooth [Unknown]
  - Cough [Not Recovered/Not Resolved]
  - Blood glucose increased [Unknown]
  - Incorrect dose administered [Unknown]
  - Gastrointestinal disorder [Unknown]
  - Tooth disorder [Unknown]
  - Blood creatinine normal [Unknown]
  - Red cell distribution width increased [Unknown]
  - Blood triglycerides increased [Unknown]
  - Headache [Unknown]
  - Malaise [Unknown]
  - Gingival erythema [Unknown]
  - Pain in jaw [Recovered/Resolved]

NARRATIVE: CASE EVENT DATE: 20171016
